FAERS Safety Report 5340498-8 (Version None)
Quarter: 2007Q2

REPORT INFORMATION
  Report Type: 
  Country: None (occurrence: None)
  Receive Date: 20070405
  Receipt Date: 20061207
  Transmission Date: 20071010
  Serious: No
  Sender: FDA-Public Use
  Company Number: US200612001170

PATIENT
  Age: 57 Year
  Sex: Female

DRUGS (4)
  1. CYMBALTA [Suspect]
     Indication: OBSESSIVE-COMPULSIVE DISORDER
     Dosage: 60 MG, ORAL
     Route: 048
     Dates: start: 20060101, end: 20061101
  2. HORMONES AND RELATED AGENTS [Concomitant]
  3. SYNTHROID [Concomitant]
  4. RITALIN (METHYLPHENIDATE HYDROCLORIDE) [Concomitant]

REACTIONS (6)
  - ABDOMINAL DISTENSION [None]
  - HYPERHIDROSIS [None]
  - HYPERSOMNIA [None]
  - LIBIDO DECREASED [None]
  - MIDDLE INSOMNIA [None]
  - SOMNOLENCE [None]
